FAERS Safety Report 26158426 (Version 2)
Quarter: 2025Q4

REPORT INFORMATION
  Report Type: Report from Study
  Country: CA (occurrence: CA)
  Receive Date: 20251215
  Receipt Date: 20251229
  Transmission Date: 20260118
  Serious: Yes (Other)
  Sender: PFIZER
  Company Number: CA-PFIZER INC-202500241932

PATIENT
  Age: 57 Year
  Sex: Male

DRUGS (6)
  1. IXIFI [Suspect]
     Active Substance: INFLIXIMAB-QBTX
     Indication: Rheumatoid arthritis
     Dosage: 600 MG, EVERY 5 WEEKS
     Route: 042
     Dates: start: 20250819
  2. IXIFI [Suspect]
     Active Substance: INFLIXIMAB-QBTX
     Dosage: 600 MG, EVERY 5 WEEKS
     Route: 042
     Dates: start: 20251028
  3. ACETAMINOPHEN [Concomitant]
     Active Substance: ACETAMINOPHEN
     Dosage: 1 DF
  4. GLYBURIDE [Concomitant]
     Active Substance: GLYBURIDE
     Dosage: 1 DF
  5. RAMIPRIL [Concomitant]
     Active Substance: RAMIPRIL
     Dosage: 1 DF
  6. ROSUVASTATIN [Concomitant]
     Active Substance: ROSUVASTATIN
     Dosage: 1 DF

REACTIONS (3)
  - Seizure [Unknown]
  - Depressed mood [Unknown]
  - Malaise [Unknown]

NARRATIVE: CASE EVENT DATE: 20251101
